FAERS Safety Report 8262702-9 (Version None)
Quarter: 2012Q2

REPORT INFORMATION
  Report Type: 
  Country: None (occurrence: None)
  Receive Date: 20120405
  Receipt Date: 20120404
  Transmission Date: 20120825
  Serious: Yes (Hospitalization, Other)
  Sender: FDA-Public Use
  Company Number: PHHY2010IN37440

PATIENT
  Age: 46 Year
  Sex: Female

DRUGS (3)
  1. IMIPRAMINE [Interacting]
     Indication: DYSTHYMIC DISORDER
     Dosage: 75 MG PER DAY
  2. GLYBURIDE [Suspect]
     Dosage: 5 MG PER DAY
  3. ESCITALOPRAM [Interacting]
     Dosage: 20 MG PER DAY

REACTIONS (8)
  - ANHEDONIA [None]
  - BLOOD FOLLICLE STIMULATING HORMONE INCREASED [None]
  - SLEEP DISORDER [None]
  - DRUG INTERACTION [None]
  - DEPRESSED MOOD [None]
  - GALACTORRHOEA [None]
  - BRAIN MASS [None]
  - ANXIETY [None]
